FAERS Safety Report 5364510-5 (Version None)
Quarter: 2007Q2

REPORT INFORMATION
  Report Type: 
  Country: None (occurrence: None)
  Receive Date: 20070530
  Receipt Date: 20070117
  Transmission Date: 20071010
  Serious: No
  Sender: FDA-Public Use
  Company Number: 2007PV028567

PATIENT
  Age: 52 Year
  Sex: Male
  Weight: 136.0791 kg

DRUGS (2)
  1. BYETTA [Suspect]
     Indication: INSULIN RESISTANCE
     Dosage: 10 MCG BID SC ; 10 MCG BID SC ; 5 MCG BID SC
     Route: 058
  2. PREDNISONE [Concomitant]

REACTIONS (8)
  - ASTHENIA [None]
  - BLOOD GLUCOSE DECREASED [None]
  - BLOOD GLUCOSE FLUCTUATION [None]
  - FATIGUE [None]
  - HYPOGLYCAEMIA [None]
  - INJECTION SITE ANAESTHESIA [None]
  - INJECTION SITE BRUISING [None]
  - INJECTION SITE PAIN [None]
